FAERS Safety Report 5913252-3 (Version None)
Quarter: 2008Q4

REPORT INFORMATION
  Report Type: 
  Country: None (occurrence: None)
  Receive Date: 20081008
  Receipt Date: 20081008
  Transmission Date: 20090506
  Serious: No
  Sender: FDA-Public Use
  Company Number: None

PATIENT
  Sex: Female
  Weight: 122.9248 kg

DRUGS (1)
  1. PRISTIQ [Suspect]
     Dosage: 100MG 1 DAILY PO
     Route: 048

REACTIONS (3)
  - AGITATION [None]
  - INSOMNIA [None]
  - MANIA [None]
